FAERS Safety Report 20649875 (Version 1)
Quarter: 2022Q1

REPORT INFORMATION
  Report Type: Spontaneous
  Country: US (occurrence: US)
  Receive Date: 20220329
  Receipt Date: 20220329
  Transmission Date: 20220423
  Serious: No
  Sender: FDA-Public Use
  Company Number: US-PERRIGO-21US024391

PATIENT
  Sex: Female
  Weight: 62.585 kg

DRUGS (10)
  1. ACETAMINOPHEN [Suspect]
     Active Substance: ACETAMINOPHEN
     Indication: Arthritis
     Dosage: 650 MG, QD
     Route: 048
     Dates: start: 2019, end: 2021
  2. ACETAMINOPHEN [Suspect]
     Active Substance: ACETAMINOPHEN
     Dosage: 650 MG, QD OR QOD
     Route: 048
     Dates: start: 202108, end: 2021
  3. TRAMADOL [Suspect]
     Active Substance: TRAMADOL
     Indication: Arthritis
     Dosage: 50 MG, QD
     Route: 065
     Dates: start: 2019, end: 2021
  4. TRAMADOL [Suspect]
     Active Substance: TRAMADOL
     Dosage: 25 MG, QD
     Route: 065
     Dates: start: 2021
  5. ENBREL [Suspect]
     Active Substance: ETANERCEPT
     Indication: Arthritis
     Dosage: UNKNOWN, ONCE A WEEK
     Route: 065
     Dates: start: 2019, end: 2020
  6. RINVOQ [Suspect]
     Active Substance: UPADACITINIB
     Indication: Arthralgia
     Dosage: 1 TABLET, QD
     Route: 065
     Dates: start: 2021
  7. LEVOTHYROXINE [Concomitant]
     Active Substance: LEVOTHYROXINE
     Indication: Hypothyroidism
     Dosage: UNK
     Route: 065
     Dates: start: 1981
  8. CYANOCOBALAMIN [Concomitant]
     Active Substance: CYANOCOBALAMIN
     Indication: Supplementation therapy
     Dosage: UNK
     Route: 065
  9. OXYMETAZOLINE HYDROCHLORIDE [Concomitant]
     Active Substance: OXYMETAZOLINE HYDROCHLORIDE
     Indication: Hypersensitivity
     Dosage: UNK
     Route: 065
  10. OMEPRAZOLE [Concomitant]
     Active Substance: OMEPRAZOLE
     Indication: Abdominal discomfort
     Dosage: UNK
     Route: 065

REACTIONS (3)
  - Rash [Recovered/Resolved]
  - Incorrect product administration duration [Recovered/Resolved]
  - Underdose [Recovered/Resolved]

NARRATIVE: CASE EVENT DATE: 20190101
